FAERS Safety Report 9495860 (Version 1)
Quarter: 2013Q3

REPORT INFORMATION
  Report Type: Report from Study
  Country: US (occurrence: US)
  Receive Date: 20130903
  Receipt Date: 20130903
  Transmission Date: 20140515
  Serious: Yes (Life-Threatening, Hospitalization)
  Sender: FDA-Public Use
  Company Number: US-MERCK-1308USA015206

PATIENT
  Age: 71 Year
  Sex: Female
  Weight: 46.67 kg

DRUGS (12)
  1. VORINOSTAT [Suspect]
     Indication: DIFFUSE LARGE B-CELL LYMPHOMA
     Dosage: 400 MG PO QD ON DAYS 1-5, CYCLE 1
     Route: 048
     Dates: start: 20130423
  2. VORINOSTAT [Suspect]
     Dosage: 400 MG PO QD ON DAYS 1-5, CYCLE 3
     Route: 048
     Dates: start: 20130604, end: 20130608
  3. RITUXIMAB [Suspect]
     Indication: DIFFUSE LARGE B-CELL LYMPHOMA
     Dosage: 375MG/M2 IV INFUSION ON DAY 3, CYCLE 1
     Route: 042
     Dates: start: 20130425, end: 20130425
  4. RITUXIMAB [Suspect]
     Dosage: 375MG/M2 IV INFUSION ON DAY 3, CYCLE 3
     Route: 042
     Dates: start: 20130606, end: 20130606
  5. CYCLOPHOSPHAMIDE [Suspect]
     Indication: DIFFUSE LARGE B-CELL LYMPHOMA
     Dosage: 750MG/M2 IV OVER 30-60 MINUTES ON DAY 3, CYCLE 1
     Route: 042
     Dates: start: 20130425, end: 20130425
  6. CYCLOPHOSPHAMIDE [Suspect]
     Dosage: 750MG/M2 IV OVER 30-60 MINUTES ON DAY 3
     Route: 042
     Dates: start: 20130606, end: 20130606
  7. DOXORUBICIN [Suspect]
     Indication: DIFFUSE LARGE B-CELL LYMPHOMA
     Dosage: 50 MG/M2 IVP ON DAY 3, CYCLE 1
     Route: 042
     Dates: start: 20130425, end: 20130425
  8. DOXORUBICIN [Suspect]
     Dosage: 50 MG/M2 IVP ON DAY 3, CYCLE 3
     Route: 042
     Dates: start: 20130606, end: 20130606
  9. VINCRISTINE [Suspect]
     Indication: DIFFUSE LARGE B-CELL LYMPHOMA
     Dosage: 1.4 MG/M2 IVP ON DAY 3, CYCLE 1
     Route: 042
     Dates: start: 20130425, end: 20130425
  10. VINCRISTINE [Suspect]
     Dosage: 1.4 MG/M2 IVP ON DAY 3, CYCLE 3
     Route: 042
     Dates: start: 20130606, end: 20130606
  11. PREDNISONE [Suspect]
     Indication: DIFFUSE LARGE B-CELL LYMPHOMA
     Dosage: 100 MG PO QD ON DAYS 3-7, CYCLE 1
     Route: 048
     Dates: start: 20130425
  12. PREDNISONE [Suspect]
     Dosage: 100 MG PO QD ON DAYS 3-7, CYCLE 1
     Route: 048
     Dates: start: 20130606, end: 20130610

REACTIONS (3)
  - Sepsis [Recovered/Resolved with Sequelae]
  - Febrile neutropenia [Recovered/Resolved with Sequelae]
  - Pneumonitis [Recovered/Resolved with Sequelae]
